FAERS Safety Report 7716931-0 (Version None)
Quarter: 2011Q3

REPORT INFORMATION
  Report Type: 
  Country: None (occurrence: None)
  Receive Date: 20110829
  Receipt Date: 20110823
  Transmission Date: 20111222
  Serious: Yes (Hospitalization)
  Sender: FDA-Public Use
  Company Number: US-ABBOTT-11P-163-0848400-00

PATIENT
  Age: 40 Year
  Sex: Female

DRUGS (5)
  1. DILAUDID [Suspect]
     Indication: BREAKTHROUGH PAIN
     Dates: start: 20110601
  2. OXYCONTIN [Suspect]
  3. DRONABINOL [Suspect]
     Indication: DECREASED APPETITE
     Dates: start: 20110601
  4. OXYCONTIN [Suspect]
     Indication: PRODUCT USED FOR UNKNOWN INDICATION
  5. IXABEPILONE [Suspect]
     Indication: ADENOCARCINOMA OF THE CERVIX
     Dosage: OVER 60 MINUTES ON DAYS 1-5 OF 21-DAY CYCLE
     Route: 042
     Dates: start: 20110602

REACTIONS (3)
  - NAUSEA [None]
  - VOMITING [None]
  - ILEUS [None]
